FAERS Safety Report 24856690 (Version 2)
Quarter: 2025Q1

REPORT INFORMATION
  Report Type: Report from Study
  Country: DE (occurrence: EU)
  Receive Date: 20250117
  Receipt Date: 20250211
  Transmission Date: 20250408
  Serious: Yes (Hospitalization)
  Sender: ASCENDIS PHARMA
  Company Number: DE-ASCENDIS PHARMA-2024EU007319

PATIENT

DRUGS (4)
  1. PALOPEGTERIPARATIDE [Suspect]
     Active Substance: PALOPEGTERIPARATIDE
     Indication: Hypoparathyroidism
     Route: 058
     Dates: start: 20241203
  2. PALOPEGTERIPARATIDE [Suspect]
     Active Substance: PALOPEGTERIPARATIDE
     Route: 058
     Dates: start: 20250203
  3. CALCITRIOL [Concomitant]
     Active Substance: CALCITRIOL
     Indication: Hypoparathyroidism
     Route: 048
  4. IBUPROFEN [Concomitant]
     Active Substance: IBUPROFEN
     Indication: Pain
     Route: 048

REACTIONS (3)
  - Injection site urticaria [Not Recovered/Not Resolved]
  - Head discomfort [Not Recovered/Not Resolved]
  - Off label use [Not Recovered/Not Resolved]

NARRATIVE: CASE EVENT DATE: 20241213
